APPROVED DRUG PRODUCT: DILTIAZEM HYDROCHLORIDE
Active Ingredient: DILTIAZEM HYDROCHLORIDE
Strength: 5MG/ML
Dosage Form/Route: INJECTABLE;INJECTION
Application: A074617 | Product #001 | TE Code: AP
Applicant: SAGENT PHARMACEUTICALS
Approved: Feb 28, 1996 | RLD: No | RS: Yes | Type: RX